FAERS Safety Report 6590481-X (Version None)
Quarter: 2010Q1

REPORT INFORMATION
  Report Type: 
  Country: None (occurrence: None)
  Receive Date: 20100219
  Receipt Date: 20100210
  Transmission Date: 20100710
  Serious: Yes (Hospitalization)
  Sender: FDA-Public Use
  Company Number: GB-ROCHE-685437

PATIENT
  Age: 45 Year
  Sex: Female

DRUGS (5)
  1. XENICAL [Suspect]
     Indication: OBESITY
     Dosage: DURATION: 2 DAY
     Route: 065
  2. LEVOMEPRAZINE [Concomitant]
  3. THIAMINE [Concomitant]
  4. VENLAFAXINE [Concomitant]
  5. VIT B [Concomitant]
     Dosage: DRUG NAME: VITAMIN B SUBSTANCES
     Route: 048

REACTIONS (11)
  - ABDOMINAL PAIN UPPER [None]
  - ABDOMINAL TENDERNESS [None]
  - ALANINE AMINOTRANSFERASE INCREASED [None]
  - ASPARTATE AMINOTRANSFERASE INCREASED [None]
  - BLOOD AMYLASE INCREASED [None]
  - BLOOD GLUCOSE INCREASED [None]
  - C-REACTIVE PROTEIN INCREASED [None]
  - NAUSEA [None]
  - PANCREATIC ENZYMES INCREASED [None]
  - PANCREATITIS ACUTE [None]
  - WHITE BLOOD CELL COUNT INCREASED [None]
